FAERS Safety Report 12764361 (Version 1)
Quarter: 2016Q3

REPORT INFORMATION
  Report Type: Report from Study
  Country: BR (occurrence: BR)
  Receive Date: 20160920
  Receipt Date: 20160920
  Transmission Date: 20161109
  Serious: Yes (Other)
  Sender: FDA-Public Use
  Company Number: BR-ABBVIE-16K-020-1729476-00

PATIENT
  Age: 33 Year
  Sex: Female
  Weight: 72 kg

DRUGS (3)
  1. HUMIRA [Suspect]
     Active Substance: ADALIMUMAB
     Indication: ANKYLOSING SPONDYLITIS
     Route: 058
     Dates: start: 20160708
  2. SULFASALAZINE. [Concomitant]
     Active Substance: SULFASALAZINE
     Indication: SPONDYLITIS
     Route: 048
     Dates: start: 201607
  3. PANTOPRAZOLE [Concomitant]
     Active Substance: PANTOPRAZOLE SODIUM
     Indication: IRRITABLE BOWEL SYNDROME
     Route: 048
     Dates: start: 2014

REACTIONS (3)
  - Pulmonary granuloma [Not Recovered/Not Resolved]
  - Nephrolithiasis [Not Recovered/Not Resolved]
  - Pulmonary calcification [Not Recovered/Not Resolved]

NARRATIVE: CASE EVENT DATE: 20160824
